FAERS Safety Report 5510330-8 (Version None)
Quarter: 2007Q4

REPORT INFORMATION
  Report Type: 
  Country: None (occurrence: None)
  Receive Date: 20071108
  Receipt Date: 20071029
  Transmission Date: 20080405
  Serious: Yes (Hospitalization)
  Sender: FDA-Public Use
  Company Number: CA-PFIZER INC-2007074617

PATIENT
  Sex: Female
  Weight: 59 kg

DRUGS (9)
  1. CHAMPIX [Suspect]
     Indication: SMOKING CESSATION THERAPY
     Route: 048
  2. CELEBREX [Suspect]
     Route: 048
  3. ALL OTHER THERAPEUTIC PRODUCTS [Suspect]
     Dates: start: 20070801, end: 20070831
  4. PANTOPRAZOLE SODIUM [Concomitant]
  5. PREMARIN [Concomitant]
  6. PREVACID [Concomitant]
  7. BIAXIN [Concomitant]
  8. OXYCONTIN [Concomitant]
  9. VALSARTAN [Concomitant]

REACTIONS (4)
  - ARTHRITIS [None]
  - C-REACTIVE PROTEIN INCREASED [None]
  - PRURITUS [None]
  - RASH [None]
